FAERS Safety Report 24124793 (Version 1)
Quarter: 2024Q3

REPORT INFORMATION
  Report Type: Report from Study
  Country: RU (occurrence: None)
  Receive Date: 20240723
  Receipt Date: 20240723
  Transmission Date: 20241016
  Serious: Yes (Hospitalization)
  Sender: ASTRAZENECA
  Company Number: 2021A580651

PATIENT
  Age: 30716 Day
  Sex: Female
  Weight: 60 kg

DRUGS (1)
  1. BRILINTA [Suspect]
     Active Substance: TICAGRELOR
     Indication: Myocardial infarction
     Route: 048
     Dates: start: 20210611

REACTIONS (1)
  - Chest pain [Recovered/Resolved]

NARRATIVE: CASE EVENT DATE: 20210625
